FAERS Safety Report 8613696 (Version 3)
Quarter: 2012Q4

REPORT INFORMATION
  Report Type: Report from Study
  Country: AT (occurrence: AT)
  Receive Date: 20120614
  Receipt Date: 20120904
  Transmission Date: 20130627
  Serious: Yes (Hospitalization)
  Sender: FDA-Public Use
  Company Number: AT-JNJFOC-20120602751

PATIENT
  Age: 22 Year
  Sex: Female
  Weight: 84.9 kg

DRUGS (6)
  1. XEPLION [Suspect]
     Indication: SCHIZOPHRENIA
     Route: 030
     Dates: start: 20111215
  2. VALPROATE SODIUM [Concomitant]
     Indication: AFFECTIVE DISORDER
  3. PROTHIPENDYL [Concomitant]
     Indication: SLEEP DISORDER
     Dates: start: 20111105, end: 20120519
  4. ESOMEPRAZOL [Concomitant]
     Indication: GASTRITIS
     Dates: start: 20111117
  5. LORAZEPAM [Concomitant]
     Indication: SLEEP DISORDER
     Route: 065
  6. CYPROTERONE ACETATE W/ETHINYLESTRADIOL [Concomitant]
     Indication: CONTRACEPTION

REACTIONS (14)
  - Psychotic disorder [Recovered/Resolved]
  - Hallucination, auditory [None]
  - Anxiety [None]
  - Suicidal ideation [None]
  - Mood altered [None]
  - Abdominal pain [None]
  - Feeling abnormal [None]
  - Crying [None]
  - Anxiety [None]
  - Hallucination, visual [None]
  - Disturbance in attention [None]
  - Depressed mood [None]
  - Mood altered [None]
  - Schizophrenia, paranoid type [None]
